FAERS Safety Report 17498396 (Version 3)
Quarter: 2020Q2

REPORT INFORMATION
  Report Type: Report from Study
  Country: US (occurrence: US)
  Receive Date: 20200304
  Receipt Date: 20200413
  Transmission Date: 20200713
  Serious: Yes (Hospitalization, Other)
  Sender: FDA-Public Use
  Company Number: US-ACTELION-A-US2017-163255

PATIENT
  Age: 59 Year
  Sex: Female
  Weight: 82.54 kg

DRUGS (11)
  1. VELETRI [Suspect]
     Active Substance: EPOPROSTENOL
     Dosage: 12 NG/KG, PER MIN
     Route: 042
  2. COUMADIN [Concomitant]
     Active Substance: WARFARIN SODIUM
  3. OPSUMIT [Concomitant]
     Active Substance: MACITENTAN
     Indication: PULMONARY ARTERIAL HYPERTENSION
     Route: 048
  4. UPTRAVI [Concomitant]
     Active Substance: SELEXIPAG
     Indication: PULMONARY ARTERIAL HYPERTENSION
  5. REVATIO [Concomitant]
     Active Substance: SILDENAFIL CITRATE
  6. VELETRI [Suspect]
     Active Substance: EPOPROSTENOL
     Indication: PULMONARY ARTERIAL HYPERTENSION
     Dosage: 14 NG/KG, PER MIN
     Route: 042
  7. VELETRI [Suspect]
     Active Substance: EPOPROSTENOL
     Dosage: 29.5 NG/KG, PER MIN
     Route: 042
  8. VELETRI [Suspect]
     Active Substance: EPOPROSTENOL
     Dosage: 29.5 NG/KG, PER MIN
     Route: 042
  9. LYRICA [Suspect]
     Active Substance: PREGABALIN
     Indication: PRODUCT USED FOR UNKNOWN INDICATION
     Route: 065
  10. GABAPENTIN. [Suspect]
     Active Substance: GABAPENTIN
     Indication: PRODUCT USED FOR UNKNOWN INDICATION
     Route: 065
  11. VELETRI [Suspect]
     Active Substance: EPOPROSTENOL
     Dosage: 29.5 NG/KG, PER MIN
     Route: 042

REACTIONS (31)
  - Therapy change [Unknown]
  - Pain in jaw [Unknown]
  - Diabetes mellitus [Unknown]
  - Dizziness [Unknown]
  - Cough [Unknown]
  - Nausea [Unknown]
  - Hepatic cirrhosis [Not Recovered/Not Resolved]
  - Diarrhoea [Not Recovered/Not Resolved]
  - Rash macular [Unknown]
  - Feeling abnormal [Unknown]
  - Fatigue [Unknown]
  - Flushing [Unknown]
  - Upper respiratory tract infection [Unknown]
  - Arthropod bite [Unknown]
  - Pneumonia [Unknown]
  - Palpitations [Unknown]
  - Headache [Unknown]
  - Rash [Unknown]
  - Condition aggravated [Unknown]
  - Erythema [Unknown]
  - Heart rate increased [Unknown]
  - Device related infection [Unknown]
  - Liver disorder [Unknown]
  - Device leakage [Unknown]
  - Dyspnoea exertional [Not Recovered/Not Resolved]
  - Stress [Unknown]
  - Oxygen saturation decreased [Unknown]
  - Musculoskeletal pain [Not Recovered/Not Resolved]
  - Pain in extremity [Unknown]
  - Neuropathy peripheral [Unknown]
  - Device alarm issue [Unknown]

NARRATIVE: CASE EVENT DATE: 20171224
